FAERS Safety Report 5588432-X (Version None)
Quarter: 2008Q1

REPORT INFORMATION
  Report Type: 
  Country: None (occurrence: None)
  Receive Date: 20080111
  Receipt Date: 20080108
  Transmission Date: 20080703
  Serious: Yes (Life-Threatening)
  Sender: FDA-Public Use
  Company Number: FR-ASTRAZENECA-2008CG00038

PATIENT
  Sex: Female

DRUGS (2)
  1. TENORMIN [Suspect]
     Indication: HYPERTENSION
     Route: 048
     Dates: start: 20060920
  2. CELECTOL [Suspect]
     Indication: HYPERTENSION
     Dates: end: 20060920

REACTIONS (3)
  - ABORTION INDUCED [None]
  - DRUG EXPOSURE DURING PREGNANCY [None]
  - FOETAL GROWTH RETARDATION [None]
